FAERS Safety Report 20707144 (Version 1)
Quarter: 2022Q2

REPORT INFORMATION
  Report Type: Report from Study
  Country: US (occurrence: US)
  Receive Date: 20220413
  Receipt Date: 20220413
  Transmission Date: 20220720
  Serious: Yes (Death, Hospitalization, Other)
  Sender: FDA-Public Use
  Company Number: US-TAKEDA-US201502869

PATIENT
  Age: 60 Year
  Sex: Female
  Weight: 59.87 kg

DRUGS (12)
  1. VELAGLUCERASE ALFA [Suspect]
     Active Substance: VELAGLUCERASE ALFA
     Indication: Gaucher^s disease
     Dosage: 3600 INTERNATIONAL UNIT, Q2WEEKS
     Route: 041
     Dates: start: 20140207
  2. XANAX [Concomitant]
     Active Substance: ALPRAZOLAM
     Indication: Product used for unknown indication
     Dosage: 0.25 MG, NIGHTLY AS REQ^D
     Route: 048
  3. NORVASC [Concomitant]
     Active Substance: AMLODIPINE BESYLATE
     Indication: Product used for unknown indication
     Dosage: 5 MG, 1X/DAY:QD
     Route: 048
  4. SOMA [Concomitant]
     Active Substance: CARISOPRODOL
     Indication: Muscle spasms
     Dosage: 350 MG, AS REQ^D (THREE TIMES A DAY)
     Route: 048
  5. SPECTAZOLE [Concomitant]
     Active Substance: ECONAZOLE NITRATE
     Indication: Product used for unknown indication
     Dosage: 1 DF, 1X/DAY:QD
     Route: 061
  6. LEXAPRO [Concomitant]
     Active Substance: ESCITALOPRAM OXALATE
     Indication: Product used for unknown indication
     Dosage: 20 MG, 1X/DAY:QD
     Route: 048
  7. MICROZIDE                          /00022001/ [Concomitant]
     Indication: Product used for unknown indication
     Dosage: 12.5 MG, 1X/DAY:QD (EVERY MORNING)
     Route: 048
  8. NORCO [Concomitant]
     Active Substance: ACETAMINOPHEN\HYDROCODONE BITARTRATE
     Indication: Pain
     Dosage: 5-325 MG, AS REQ^D (EVERY 6 HOURS)
     Route: 048
  9. COZAAR [Concomitant]
     Active Substance: LOSARTAN POTASSIUM
     Indication: Product used for unknown indication
     Dosage: 100 MG, 1X/DAY:QD
     Route: 048
  10. ZEGERID                            /00661201/ [Concomitant]
     Indication: Product used for unknown indication
     Dosage: 40-1100 MG, 1X/DAY:QD (BEFORE BREAKFAST)
     Route: 048
  11. ZOFRAN                             /00955301/ [Concomitant]
     Indication: Nausea
     Dosage: 8 MG, AS REQ^D (EVERY 8 HOURS)
     Route: 048
  12. INDERAL [Concomitant]
     Active Substance: PROPRANOLOL HYDROCHLORIDE
     Indication: Product used for unknown indication
     Dosage: 80 MG, 1X/DAY:QD
     Route: 048

REACTIONS (4)
  - Death [Fatal]
  - Femur fracture [Recovering/Resolving]
  - Fall [Recovered/Resolved]
  - Product dose omission issue [Unknown]

NARRATIVE: CASE EVENT DATE: 20150305
